FAERS Safety Report 14998655 (Version 7)
Quarter: 2023Q1

REPORT INFORMATION
  Report Type: Other
  Country: CA (occurrence: CA)
  Receive Date: 20180612
  Receipt Date: 20230312
  Transmission Date: 20230417
  Serious: Yes (Hospitalization, Other)
  Sender: FDA-Public Use
  Company Number: CA-002147023-PHHY2018CA043690

PATIENT
  Age: 25 Year
  Sex: Female

DRUGS (24)
  1. XOLAIR [Suspect]
     Active Substance: OMALIZUMAB
     Indication: Chronic spontaneous urticaria
     Route: 058
     Dates: start: 20180307
  2. XOLAIR [Suspect]
     Active Substance: OMALIZUMAB
     Route: 058
     Dates: start: 20180404
  3. XOLAIR [Suspect]
     Active Substance: OMALIZUMAB
     Route: 058
     Dates: start: 20180502
  4. XOLAIR [Suspect]
     Active Substance: OMALIZUMAB
     Route: 058
     Dates: start: 20181212
  5. XOLAIR [Suspect]
     Active Substance: OMALIZUMAB
     Route: 058
     Dates: start: 20190529
  6. XOLAIR [Suspect]
     Active Substance: OMALIZUMAB
     Route: 058
  7. XOLAIR [Suspect]
     Active Substance: OMALIZUMAB
     Route: 058
  8. XOLAIR [Suspect]
     Active Substance: OMALIZUMAB
     Route: 065
     Dates: start: 20220427
  9. CLARITHROMYCIN [Suspect]
     Active Substance: CLARITHROMYCIN
     Indication: Product used for unknown indication
     Route: 065
     Dates: start: 202002
  10. MACROBID [Suspect]
     Active Substance: NITROFURANTOIN\NITROFURANTOIN MONOHYDRATE
     Indication: Urinary tract infection
     Dosage: UNK UNK, QD
     Route: 065
  11. ZANTAC [Suspect]
     Active Substance: RANITIDINE HYDROCHLORIDE
     Indication: Chronic spontaneous urticaria
     Route: 065
     Dates: start: 2016, end: 20171127
  12. RANITIDINE [Suspect]
     Active Substance: RANITIDINE
     Indication: Product used for unknown indication
     Route: 065
  13. AMOXICILLIN [Suspect]
     Active Substance: AMOXICILLIN
     Indication: Product used for unknown indication
     Route: 065
  14. LORAZEPAM [Concomitant]
     Active Substance: LORAZEPAM
     Indication: Anxiety
     Dosage: 1 DF, BID
     Route: 048
     Dates: start: 201703
  15. MONTELUKAST [Concomitant]
     Active Substance: MONTELUKAST SODIUM
     Indication: Chronic spontaneous urticaria
     Dosage: 1 DF, QD
     Route: 048
     Dates: start: 20160114
  16. CETIRIZINE HYDROCHLORIDE [Concomitant]
     Active Substance: CETIRIZINE HYDROCHLORIDE
     Indication: Chronic spontaneous urticaria
     Dosage: 1 DF, QD
     Route: 048
     Dates: start: 20160114
  17. PREDNISONE [Concomitant]
     Active Substance: PREDNISONE
     Indication: Chronic spontaneous urticaria
     Dosage: 1 DF, QD
     Route: 048
     Dates: start: 20160427, end: 201606
  18. BENADRYL [Concomitant]
     Active Substance: DIPHENHYDRAMINE HYDROCHLORIDE
     Indication: Chronic spontaneous urticaria
     Dosage: 1 DF, PRN
     Route: 048
     Dates: start: 2015
  19. PEPCID [Concomitant]
     Active Substance: FAMOTIDINE
     Indication: Chronic spontaneous urticaria
     Dosage: 1 DF, PRN
     Route: 048
     Dates: start: 20180120
  20. SEASONALE [Concomitant]
     Active Substance: ETHINYL ESTRADIOL\LEVONORGESTREL
     Indication: Contraception
     Dosage: 1 DF, QD
     Route: 048
     Dates: start: 2009
  21. EPIPEN [Concomitant]
     Active Substance: EPINEPHRINE
     Indication: Hypersensitivity
     Dosage: 1 DF, UNK
     Route: 030
     Dates: start: 2008
  22. KETOROLAC [Concomitant]
     Active Substance: KETOROLAC TROMETHAMINE
     Indication: Temporomandibular joint syndrome
     Dosage: 1 DF, BID
     Route: 048
     Dates: start: 201505
  23. CYCLOBENZAPRINE [Concomitant]
     Active Substance: CYCLOBENZAPRINE
     Indication: Temporomandibular joint syndrome
     Dosage: 1 DF, TID
     Route: 048
     Dates: start: 2016
  24. TYLENOL [Concomitant]
     Active Substance: ACETAMINOPHEN
     Indication: Temporomandibular joint syndrome
     Dosage: 1 DF, PRN
     Route: 048

REACTIONS (14)
  - Anaphylactic reaction [Unknown]
  - Urticaria [Unknown]
  - Arthropod sting [Unknown]
  - Injection site pain [Unknown]
  - Injection site pruritus [Recovered/Resolved]
  - Blood pressure increased [Unknown]
  - Tachycardia [Unknown]
  - Sensitivity to weather change [Unknown]
  - Depressed mood [Unknown]
  - Weight decreased [Unknown]
  - Sinusitis [Recovered/Resolved]
  - Cystitis [Unknown]
  - Anxiety [Unknown]
  - Drug hypersensitivity [Unknown]

NARRATIVE: CASE EVENT DATE: 20180307
